FAERS Safety Report 22245433 (Version 2)
Quarter: 2023Q2

REPORT INFORMATION
  Report Type: Spontaneous
  Country: BR (occurrence: BR)
  Receive Date: 20230424
  Receipt Date: 20230510
  Transmission Date: 20230722
  Serious: Yes (Death, Other)
  Sender: FDA-Public Use
  Company Number: BR-GILEAD-2023-0625436

PATIENT
  Age: 38 Year
  Sex: Female
  Weight: 75 kg

DRUGS (1)
  1. TRODELVY [Suspect]
     Active Substance: SACITUZUMAB GOVITECAN-HZIY
     Indication: Triple negative breast cancer
     Dosage: 740
     Route: 042
     Dates: start: 20230302, end: 20230309

REACTIONS (3)
  - Infection [Fatal]
  - Sepsis [Fatal]
  - Cholecystitis acute [Fatal]

NARRATIVE: CASE EVENT DATE: 20230324
